FAERS Safety Report 5052322-1 (Version None)
Quarter: 2006Q2

REPORT INFORMATION
  Report Type: 
  Country: None (occurrence: None)
  Receive Date: 20060614
  Receipt Date: 20060227
  Transmission Date: 20061013
  Serious: Yes (Other)
  Sender: FDA-Public Use
  Company Number: 438442

PATIENT
  Age: 67 Year
  Sex: Female

DRUGS (4)
  1. BONIVA [Suspect]
     Indication: OSTEOPOROSIS
     Dosage: 150 MG 1 PER MONTH ORAL
     Route: 048
     Dates: start: 20050615
  2. VITAMIN NOS [Concomitant]
  3. CALCIUM NOS (CALCIUM) [Concomitant]
  4. FOSAMAX [Concomitant]

REACTIONS (1)
  - BONE DENSITY DECREASED [None]
